FAERS Safety Report 4320438-0 (Version None)
Quarter: 2004Q1

REPORT INFORMATION
  Report Type: 
  Country: None (occurrence: None)
  Receive Date: 20040317
  Receipt Date: 20040304
  Transmission Date: 20041129
  Serious: Yes (Hospitalization, Disabling, Other)
  Sender: FDA-Public Use
  Company Number: 2003029605

PATIENT
  Age: 33 Year
  Sex: Male

DRUGS (6)
  1. LIPITOR [Suspect]
     Indication: BLOOD CHOLESTEROL INCREASED
     Dosage: 10 MG (DAILY),
     Dates: start: 19980101
  2. LISINOPRIL [Suspect]
     Indication: HYPERTENSION
     Dosage: 10 MG (DAILY),
     Dates: start: 19981010, end: 19981101
  3. BUPROPION HYDROCHLORIDE [Concomitant]
  4. FLUTICASONE PROPIONATE [Concomitant]
  5. SALBUTAMOL (SALBUTAMOL) [Concomitant]
  6. FLUVOXAMINE MALEATE [Concomitant]

REACTIONS (29)
  - ALANINE AMINOTRANSFERASE INCREASED [None]
  - ALBUMIN GLOBULIN RATIO DECREASED [None]
  - ANXIETY [None]
  - BLOOD CHOLESTEROL INCREASED [None]
  - BLOOD OSMOLARITY INCREASED [None]
  - BLOOD TRIGLYCERIDES INCREASED [None]
  - BLOOD UREA INCREASED [None]
  - BLOOD URINE [None]
  - BONE CYST [None]
  - BRONCHITIS [None]
  - CHEST PAIN [None]
  - CONTUSION [None]
  - COUGH [None]
  - DIABETES MELLITUS NON-INSULIN-DEPENDENT [None]
  - EOSINOPHIL PERCENTAGE INCREASED [None]
  - GASTROENTERITIS [None]
  - HAEMATOCRIT INCREASED [None]
  - HIGH DENSITY LIPOPROTEIN DECREASED [None]
  - HYPERTENSION [None]
  - INSOMNIA [None]
  - JOINT SPRAIN [None]
  - LOW DENSITY LIPOPROTEIN INCREASED [None]
  - NASOPHARYNGITIS [None]
  - PAIN [None]
  - RED CELL DISTRIBUTION WIDTH DECREASED [None]
  - RENAL FAILURE [None]
  - RHABDOMYOLYSIS [None]
  - UPPER RESPIRATORY TRACT INFECTION [None]
  - WOUND [None]
